FAERS Safety Report 7475753-9 (Version None)
Quarter: 2011Q2

REPORT INFORMATION
  Report Type: 
  Country: None (occurrence: None)
  Receive Date: 20110512
  Receipt Date: 20090309
  Transmission Date: 20111010
  Serious: Yes (Other)
  Sender: FDA-Public Use
  Company Number: PHHY2009DE17751

PATIENT
  Sex: Female

DRUGS (4)
  1. EXTAVIA [Suspect]
     Dosage: 0.25 ML, UNK
  2. ACETAMINOPHEN [Concomitant]
     Dosage: 1 DF, QD
  3. EXTAVIA [Suspect]
     Indication: MULTIPLE SCLEROSIS
     Dosage: 250 UG (1 DF) , QOD
     Route: 058
     Dates: start: 20090304, end: 20100401
  4. EXTAVIA [Suspect]
     Dosage: 0.5 ML, UNK

REACTIONS (14)
  - CHILLS [None]
  - PAIN IN EXTREMITY [None]
  - MULTIPLE SCLEROSIS RELAPSE [None]
  - FASCIITIS [None]
  - HYPOAESTHESIA [None]
  - INFLUENZA LIKE ILLNESS [None]
  - INTRA-ABDOMINAL HAEMATOMA [None]
  - DIARRHOEA [None]
  - NAUSEA [None]
  - HEADACHE [None]
  - FEELING ABNORMAL [None]
  - INJECTION SITE DISCOLOURATION [None]
  - PYREXIA [None]
  - INJECTION SITE PAIN [None]
